FAERS Safety Report 21544655 (Version 1)
Quarter: 2022Q4

REPORT INFORMATION
  Report Type: Spontaneous
  Country: US (occurrence: None)
  Receive Date: 20221101
  Receipt Date: 20221101
  Transmission Date: 20230112
  Serious: Yes (Life-Threatening, Disabling, Other)
  Sender: FDA-Public Use
  Company Number: None

PATIENT
  Age: 64 Year
  Sex: Female
  Weight: 101.25 kg

DRUGS (10)
  1. SULFAMERAZINE\TRIMETHOPRIM [Suspect]
     Active Substance: SULFAMERAZINE\TRIMETHOPRIM
     Indication: Urinary tract infection
     Dosage: OTHER QUANTITY : 60 TABLESPOON(S);?FREQUENCY : TWICE A DAY;?
     Route: 048
  2. ENALAPRIL [Concomitant]
     Active Substance: ENALAPRIL
  3. ALBUTEROL [Concomitant]
     Active Substance: ALBUTEROL
  4. BREO ELLIPTA [Concomitant]
     Active Substance: FLUTICASONE FUROATE\VILANTEROL TRIFENATATE
  5. ASPIRIN [Concomitant]
     Active Substance: ASPIRIN
  6. PERCOCET [Concomitant]
     Active Substance: ACETAMINOPHEN\OXYCODONE HYDROCHLORIDE
  7. METFORMIN [Concomitant]
     Active Substance: METFORMIN HYDROCHLORIDE
  8. VITAMINS [Concomitant]
     Active Substance: VITAMINS
  9. Miralex [Concomitant]
  10. FIBER [Concomitant]
     Active Substance: PSYLLIUM HUSK

REACTIONS (12)
  - Malaise [None]
  - Drug hypersensitivity [None]
  - Nausea [None]
  - Dyspnoea [None]
  - Heart rate increased [None]
  - Dry mouth [None]
  - Dry eye [None]
  - Nasal dryness [None]
  - Anxiety [None]
  - Depression [None]
  - Hyperhidrosis [None]
  - Chronic obstructive pulmonary disease [None]

NARRATIVE: CASE EVENT DATE: 20221020
